FAERS Safety Report 24626851 (Version 1)
Quarter: 2024Q4

REPORT INFORMATION
  Report Type: Spontaneous
  Country: US (occurrence: US)
  Receive Date: 20241115
  Receipt Date: 20241115
  Transmission Date: 20250115
  Serious: No
  Sender: NOVO NORDISK
  Company Number: US-NOVOPROD-1135138

PATIENT

DRUGS (1)
  1. NOVOLOG [Suspect]
     Active Substance: INSULIN ASPART
     Indication: Product used for unknown indication
     Dosage: UNK
     Route: 058

REACTIONS (6)
  - Abdominal distension [Unknown]
  - Constipation [Unknown]
  - Peripheral swelling [Unknown]
  - Nausea [Unknown]
  - Weight increased [Unknown]
  - Injection site irritation [Unknown]
